FAERS Safety Report 10240843 (Version 2)
Quarter: 2014Q2

REPORT INFORMATION
  Report Type: Spontaneous
  Country: US (occurrence: US)
  Receive Date: 20140617
  Receipt Date: 20140617
  Transmission Date: 20141212
  Serious: Yes (Hospitalization)
  Sender: FDA-Public Use
  Company Number: US-AMGEN-USASP2014042766

PATIENT
  Age: 63 Year
  Sex: Female

DRUGS (1)
  1. ENBREL [Suspect]
     Indication: PSORIASIS
     Dosage: 50 MG, QWK
     Route: 065
     Dates: start: 20140401, end: 201405

REACTIONS (3)
  - Peripheral swelling [Not Recovered/Not Resolved]
  - Skin fissures [Not Recovered/Not Resolved]
  - Staphylococcal infection [Not Recovered/Not Resolved]
